FAERS Safety Report 4270467-0 (Version None)
Quarter: 2004Q1

REPORT INFORMATION
  Report Type: 
  Country: None (occurrence: None)
  Receive Date: 20040114
  Receipt Date: 20040106
  Transmission Date: 20041129
  Serious: Yes (Other)
  Sender: FDA-Public Use
  Company Number: GB-GLAXOSMITHKLINE-B0319136A

PATIENT
  Age: 51 Year
  Sex: Female
  Weight: 60 kg

DRUGS (4)
  1. CHLORPROMAZINE [Suspect]
     Indication: SCHIZOPHRENIA
     Dosage: 50MG PER DAY
     Route: 048
     Dates: end: 20031216
  2. PROCYCLIDINE [Suspect]
     Dosage: 5MG PER DAY
     Route: 048
     Dates: end: 20031216
  3. GAVISCON [Concomitant]
     Dosage: 10ML PER DAY
     Route: 048
     Dates: start: 20031216
  4. METOCLOPRAMIDE [Concomitant]
     Dosage: 10MG PER DAY
     Route: 048
     Dates: start: 20031216

REACTIONS (1)
  - HEPATOCELLULAR DAMAGE [None]
